FAERS Safety Report 12075363 (Version 1)
Quarter: 2016Q1

REPORT INFORMATION
  Report Type: Report from Study
  Country: FR (occurrence: FR)
  Receive Date: 20160213
  Receipt Date: 20160213
  Transmission Date: 20160526
  Serious: Yes (Hospitalization, Other)
  Sender: FDA-Public Use
  Company Number: FR-BRISTOL-MYERS SQUIBB COMPANY-BMS-2015-044769

PATIENT
  Age: 67 Year
  Sex: Male
  Weight: 83 kg

DRUGS (5)
  1. SOFOSBUVIR [Suspect]
     Active Substance: SOFOSBUVIR
     Indication: HEPATITIS C
     Dosage: 400 MG, QD
     Route: 048
     Dates: start: 20140908, end: 20150226
  2. OMIX [Concomitant]
     Active Substance: TAMSULOSIN HYDROCHLORIDE
     Indication: BENIGN PROSTATIC HYPERPLASIA
     Dosage: 1 DF, QD
     Route: 065
  3. KARDEGIC [Concomitant]
     Active Substance: ASPIRIN LYSINE
     Indication: CEREBROVASCULAR ACCIDENT
     Dosage: 75 MG, QD
     Route: 065
  4. DACLATASVIR DIHYDROCHLORIDE [Suspect]
     Active Substance: DACLATASVIR DIHYDROCHLORIDE
     Indication: HEPATITIS C
     Dosage: 60 MG, QD
     Route: 048
     Dates: start: 20140908, end: 20150226
  5. ATENOLOL. [Concomitant]
     Active Substance: ATENOLOL
     Indication: HYPERTENSION
     Dosage: QD
     Route: 065

REACTIONS (28)
  - Myalgia [Recovering/Resolving]
  - Effusion [Recovering/Resolving]
  - Lung disorder [Recovering/Resolving]
  - Oedema peripheral [Unknown]
  - Spider naevus [Not Recovered/Not Resolved]
  - Constipation [Unknown]
  - Epistaxis [Recovered/Resolved]
  - Anaemia macrocytic [Recovering/Resolving]
  - General physical health deterioration [Recovering/Resolving]
  - Ventricular fibrillation [Unknown]
  - Pyrexia [Recovered/Resolved]
  - Ascites [Recovering/Resolving]
  - Varices oesophageal [Recovering/Resolving]
  - Hepatocellular carcinoma [Unknown]
  - Urge incontinence [Unknown]
  - Iron overload [Recovered/Resolved]
  - Abdominal pain [Recovering/Resolving]
  - Escherichia urinary tract infection [Recovered/Resolved]
  - Aortic dilatation [Not Recovered/Not Resolved]
  - Prothrombin level decreased [Recovered/Resolved]
  - Flatulence [Recovered/Resolved]
  - Asthenia [Recovering/Resolving]
  - Hepatic encephalopathy [Unknown]
  - Inclusion body myositis [Not Recovered/Not Resolved]
  - Aortic arteriosclerosis [Unknown]
  - Influenza [Recovered/Resolved]
  - Asterixis [Recovering/Resolving]
  - Headache [Unknown]

NARRATIVE: CASE EVENT DATE: 201409
